FAERS Safety Report 20545606 (Version 2)
Quarter: 2022Q2

REPORT INFORMATION
  Report Type: Report from Study
  Country: US (occurrence: US)
  Receive Date: 20220303
  Receipt Date: 20220526
  Transmission Date: 20220721
  Serious: Yes (Hospitalization, Other)
  Sender: FDA-Public Use
  Company Number: US-BRISTOL-MYERS SQUIBB COMPANY-BMS-2022-029510

PATIENT
  Age: 75 Year
  Sex: Male

DRUGS (25)
  1. NIVOLUMAB [Suspect]
     Active Substance: NIVOLUMAB
     Indication: Malignant melanoma
     Route: 042
     Dates: start: 20211215
  2. INVESTIGATIONAL PRODUCT [Suspect]
     Active Substance: INVESTIGATIONAL PRODUCT
     Indication: Malignant melanoma
     Route: 036
     Dates: start: 20211215
  3. INVESTIGATIONAL PRODUCT [Suspect]
     Active Substance: INVESTIGATIONAL PRODUCT
     Route: 036
  4. ONDANSETRON [Concomitant]
     Active Substance: ONDANSETRON
     Dates: start: 20211013, end: 20211215
  5. ACETAMINOPHEN [Concomitant]
     Active Substance: ACETAMINOPHEN
     Dates: start: 20211013, end: 20211215
  6. DIPHENHYDRAMINE [Concomitant]
     Active Substance: DIPHENHYDRAMINE
     Dates: start: 20211013, end: 20211215
  7. IBUPROFEN [Concomitant]
     Active Substance: IBUPROFEN
     Dates: start: 20211013, end: 20211215
  8. HYDROCORTISONE [Concomitant]
     Active Substance: HYDROCORTISONE
     Dates: start: 20211013, end: 20211215
  9. ANORO ELLIPTA [Concomitant]
     Active Substance: UMECLIDINIUM BROMIDE\VILANTEROL TRIFENATATE
  10. FERROUS GLUCONATE [Concomitant]
     Active Substance: FERROUS GLUCONATE
  11. PREGABALIN [Concomitant]
     Active Substance: PREGABALIN
  12. TRAMADOL [Concomitant]
     Active Substance: TRAMADOL
  13. ALBUTEROL [Concomitant]
     Active Substance: ALBUTEROL
  14. ALLOPURINOL [Concomitant]
     Active Substance: ALLOPURINOL
  15. ASPIRIN [Concomitant]
     Active Substance: ASPIRIN
  16. ATORVASTATIN [Concomitant]
     Active Substance: ATORVASTATIN
  17. CALCIUM +amp; VITAMIN D3 [Concomitant]
  18. CARVEDILOL [Concomitant]
     Active Substance: CARVEDILOL
  19. CORTEF [Concomitant]
     Active Substance: HYDROCORTISONE
  20. DOCUSATE SODIUM [Concomitant]
     Active Substance: DOCUSATE SODIUM
  21. DOCUSATE SODIUM [Concomitant]
     Active Substance: DOCUSATE SODIUM
  22. TRIAMCINOLONE [Concomitant]
     Active Substance: TRIAMCINOLONE
     Route: 061
  23. BRIMONIDINE TARTRATE\TIMOLOL MALEATE [Concomitant]
     Active Substance: BRIMONIDINE TARTRATE\TIMOLOL MALEATE
  24. FUROSEMIDE [Concomitant]
     Active Substance: FUROSEMIDE
  25. TYLENOL [Concomitant]
     Active Substance: ACETAMINOPHEN

REACTIONS (1)
  - Atrial fibrillation [Recovered/Resolved]

NARRATIVE: CASE EVENT DATE: 20220214
